FAERS Safety Report 4353259-3 (Version None)
Quarter: 2004Q2

REPORT INFORMATION
  Report Type: 
  Country: None (occurrence: None)
  Receive Date: 20040503
  Receipt Date: 20040503
  Transmission Date: 20050107
  Serious: Yes (Other)
  Sender: FDA-Public Use
  Company Number: None

PATIENT
  Age: 59 Year
  Sex: Male
  Weight: 132.4503 kg

DRUGS (2)
  1. IRBESARTAN [Suspect]
     Indication: HYPERTENSION
     Dosage: 75 MG DAILY
  2. IRBESARTAN [Suspect]
     Indication: NEPHROPATHY
     Dosage: 75 MG DAILY

REACTIONS (1)
  - HEADACHE [None]
